FAERS Safety Report 6191711-9 (Version None)
Quarter: 2009Q2

REPORT INFORMATION
  Report Type: 
  Country: None (occurrence: None)
  Receive Date: 20090515
  Receipt Date: 20090511
  Transmission Date: 20091009
  Serious: Yes (Hospitalization)
  Sender: FDA-Public Use
  Company Number: JP-BRISTOL-MYERS SQUIBB COMPANY-14622575

PATIENT
  Age: 71 Year
  Sex: Female
  Weight: 52 kg

DRUGS (14)
  1. CARBOPLATIN [Suspect]
     Indication: LUNG ADENOCARCINOMA
     Dosage: 21-OCT-2008 RECEIVED THE THIRD COURSE
     Route: 042
     Dates: start: 20080909
  2. PACLITAXEL [Suspect]
     Indication: LUNG ADENOCARCINOMA
     Dosage: 21-OCT-2008 RECEIVED THE THIRD COURSE
     Route: 042
     Dates: start: 20080909
  3. KYTRIL [Concomitant]
  4. DEXAMETHASONE SODIUM PHOSPHATE [Concomitant]
  5. ZANTAC [Concomitant]
  6. CRESTOR [Concomitant]
  7. ADALAT [Concomitant]
  8. HALCION [Concomitant]
  9. LOXOPROFEN [Concomitant]
  10. PANTOSIN [Concomitant]
  11. MAGMITT [Concomitant]
  12. GLYCERIN [Concomitant]
  13. SOLDEM 3A [Concomitant]
  14. NOVAMIN [Concomitant]

REACTIONS (1)
  - ENTEROCOLITIS HAEMORRHAGIC [None]
